FAERS Safety Report 8788631 (Version 2)
Quarter: 2012Q4

REPORT INFORMATION
  Report Type: 
  Country: US (occurrence: US)
  Receive Date: 20120916
  Receipt Date: 20121018
  Transmission Date: 20130627
  Serious: Yes (Other)
  Sender: FDA-Public Use
  Company Number: PHEH2012US017776

PATIENT
  Sex: Female

DRUGS (10)
  1. TEGRETOL [Suspect]
     Dosage: 200 mg, QID
  2. CARBAMAZEPINE [Suspect]
     Dosage: UNK UKN, UNK
  3. ASPIRIN [Concomitant]
     Dosage: 81 mg, UNK
  4. BENAZEPRIL [Concomitant]
     Dosage: UNK UKN, UNK
  5. AMPLOP BENAZPRL [Concomitant]
     Dosage: UNK UKN, UNK
  6. COLESTIPOL [Concomitant]
     Dosage: UNK UKN, UNK
  7. GLYBURIDE [Concomitant]
     Dosage: UNK UKN, UNK
  8. NEXIUM [Concomitant]
     Dosage: UNK UKN, UNK
  9. ALPRAZOLAM [Concomitant]
     Dosage: UNK UKN, UNK
  10. APENOLOL [Concomitant]
     Dosage: UNK UKN, UNK

REACTIONS (4)
  - Myocardial infarction [Unknown]
  - Neoplasm [Unknown]
  - Breast cancer [Unknown]
  - Drug ineffective [Unknown]
